FAERS Safety Report 5118776-7 (Version None)
Quarter: 2006Q4

REPORT INFORMATION
  Report Type: 
  Country: None (occurrence: None)
  Receive Date: 20061002
  Receipt Date: 20060919
  Transmission Date: 20070319
  Serious: Yes (Death, Life-Threatening, Hospitalization)
  Sender: FDA-Public Use
  Company Number: US-ROCHE-463738

PATIENT
  Age: 72 Year
  Sex: Female
  Weight: 50.9 kg

DRUGS (2)
  1. CAPECITABINE [Suspect]
     Indication: BREAST CANCER
     Dosage: REPORTED AS DIVIDED DOSES FOR 14 DAYS IN A 21 DAY CYCLE.
     Route: 048
     Dates: start: 20060124
  2. CAPECITABINE [Suspect]
     Route: 048
     Dates: start: 20060214

REACTIONS (14)
  - ASTHENIA [None]
  - BACTERIA BLOOD IDENTIFIED [None]
  - BACTERIA STOOL IDENTIFIED [None]
  - CEREBRAL INFARCTION [None]
  - CEREBRAL ISCHAEMIA [None]
  - DEHYDRATION [None]
  - DIARRHOEA [None]
  - DIZZINESS [None]
  - FALL [None]
  - INFECTION [None]
  - LOSS OF CONSCIOUSNESS [None]
  - PERIPHERAL ARTERIAL OCCLUSIVE DISEASE [None]
  - PERIPHERAL ISCHAEMIA [None]
  - SKIN LACERATION [None]
